FAERS Safety Report 9123373 (Version 1)
Quarter: 2013Q1

REPORT INFORMATION
  Report Type: Report from Study
  Country: DE (occurrence: DE)
  Receive Date: 20130114
  Receipt Date: 20130114
  Transmission Date: 20140127
  Serious: Yes (Other)
  Sender: FDA-Public Use
  Company Number: DE-ROCHE-603403

PATIENT
  Age: 78 Year
  Sex: Male

DRUGS (3)
  1. BEVACIZUMAB [Suspect]
     Indication: RETINAL HAEMORRHAGE
     Dosage: 1.25 MG, UNK
     Route: 031
  2. ALTEPLASE [Suspect]
     Indication: RETINAL HAEMORRHAGE
     Route: 031
  3. UNSPECIFIED INGREDIENT [Suspect]
     Indication: RETINAL HAEMORRHAGE
     Route: 031

REACTIONS (1)
  - Intraocular pressure increased [Unknown]
